FAERS Safety Report 15426550 (Version 1)
Quarter: 2018Q3

REPORT INFORMATION
  Report Type: Spontaneous
  Country: US (occurrence: US)
  Receive Date: 20180925
  Receipt Date: 20180925
  Transmission Date: 20181010
  Serious: No
  Sender: FDA-Public Use
  Company Number: US-INDIVIOR LIMITED-INDV-105659-2017

PATIENT
  Sex: Female

DRUGS (3)
  1. SUBOXONE [Suspect]
     Active Substance: BUPRENORPHINE HYDROCHLORIDE\NALOXONE HYDROCHLORIDE
     Indication: DRUG DEPENDENCE
     Dosage: 8 MG, BID
     Route: 065
  2. SUBOXONE [Suspect]
     Active Substance: BUPRENORPHINE HYDROCHLORIDE\NALOXONE HYDROCHLORIDE
     Dosage: CURRENTLY TAKES A HALF FILM IN THE AM AND A WHOLE IN THE PM, UNK
     Route: 065
     Dates: start: 2017
  3. SUBOXONE [Suspect]
     Active Substance: BUPRENORPHINE HYDROCHLORIDE\NALOXONE HYDROCHLORIDE
     Dosage: TWO AND A HALF 8 MG FILMS PER DAY, UNK
     Route: 065

REACTIONS (8)
  - Product use issue [Unknown]
  - Rash [Unknown]
  - Dry skin [Unknown]
  - Thirst [Unknown]
  - Abnormal sensation in eye [Unknown]
  - Dehydration [Unknown]
  - Product preparation error [Unknown]
  - Intentional underdose [Unknown]

NARRATIVE: CASE EVENT DATE: 2017
